FAERS Safety Report 20519335 (Version 1)
Quarter: 2022Q1

REPORT INFORMATION
  Report Type: Spontaneous
  Country: MX (occurrence: MX)
  Receive Date: 20220225
  Receipt Date: 20220225
  Transmission Date: 20220423
  Serious: Yes (Death)
  Sender: FDA-Public Use
  Company Number: MX-BAYER-2022A028709

PATIENT
  Age: 79 Year
  Sex: Female
  Weight: 67 kg

DRUGS (2)
  1. XARELTO [Suspect]
     Active Substance: RIVAROXABAN
     Indication: Product used for unknown indication
     Dosage: 15 MG, QD
     Route: 048
     Dates: start: 20150116
  2. XARELTO [Suspect]
     Active Substance: RIVAROXABAN
     Dosage: 10 MG, QD
     Route: 048

REACTIONS (1)
  - Pyrexia [Fatal]

NARRATIVE: CASE EVENT DATE: 20220212
